FAERS Safety Report 6431356-6 (Version None)
Quarter: 2009Q4

REPORT INFORMATION
  Report Type: 
  Country: None (occurrence: None)
  Receive Date: 20091106
  Receipt Date: 20091028
  Transmission Date: 20100525
  Serious: Yes (Hospitalization, Other)
  Sender: FDA-Public Use
  Company Number: US-ABBOTT-09P-163-0605457-00

PATIENT
  Age: 86 Year
  Sex: Male
  Weight: 62 kg

DRUGS (6)
  1. VICODIN [Suspect]
     Indication: DRUG USE FOR UNKNOWN INDICATION
  2. REVLIMID [Suspect]
     Indication: MULTIPLE MYELOMA
     Dosage: DAY 1-14
     Route: 048
     Dates: start: 20090721, end: 20090803
  3. DEXAMETHASONE [Suspect]
     Indication: MULTIPLE MYELOMA
     Dosage: DAY 1, 2, 4, 5, 8, 9,11 AND 12
     Route: 048
     Dates: start: 20090721, end: 20090801
  4. BORTEZOMIB [Suspect]
     Indication: MULTIPLE MYELOMA
     Dosage: DAY 1, 4, 8 AND 11
     Route: 040
     Dates: start: 20090721, end: 20090730
  5. OXYCONTIN [Suspect]
     Indication: DRUG USE FOR UNKNOWN INDICATION
  6. ASPIRIN [Concomitant]
     Indication: DRUG USE FOR UNKNOWN INDICATION
     Route: 048

REACTIONS (2)
  - CONFUSIONAL STATE [None]
  - HALLUCINATION [None]
